FAERS Safety Report 6480445-9 (Version None)
Quarter: 2009Q4

REPORT INFORMATION
  Report Type: 
  Country: None (occurrence: None)
  Receive Date: 20091202
  Receipt Date: 20091120
  Transmission Date: 20100525
  Serious: Yes (Hospitalization)
  Sender: FDA-Public Use
  Company Number: KV200900814

PATIENT
  Age: 47 Year
  Sex: Male

DRUGS (2)
  1. MORPHINE SULFATE [Suspect]
     Indication: PAIN
     Dosage: 15 MG, QID, ORAL
     Route: 048
     Dates: start: 20080101, end: 20080101
  2. CYMBALTA [Concomitant]

REACTIONS (6)
  - AMNESIA [None]
  - HEART RATE DECREASED [None]
  - LIMB INJURY [None]
  - NAUSEA [None]
  - VISION BLURRED [None]
  - VOMITING [None]
